FAERS Safety Report 9967019 (Version 1)
Quarter: 2014Q1

REPORT INFORMATION
  Report Type: Report from Study
  Country: US (occurrence: US)
  Receive Date: 20140305
  Receipt Date: 20140305
  Transmission Date: 20141002
  Serious: Yes (Other)
  Sender: FDA-Public Use
  Company Number: US-ASTRAZENECA-2014SE10960

PATIENT
  Age: 752 Month
  Sex: Female
  Weight: 104.8 kg

DRUGS (18)
  1. NEXIUM [Suspect]
     Indication: ULCER
     Route: 048
     Dates: start: 201401, end: 20140213
  2. NEXIUM [Suspect]
     Indication: ULCER
     Route: 048
     Dates: start: 20140213
  3. LISINOPRIL HCTZ [Suspect]
     Dosage: 10MG 12.5 MG DAILY
     Route: 048
     Dates: start: 2011
  4. METOPROLOL TARTRATE [Suspect]
     Indication: BLOOD PRESSURE
     Route: 048
     Dates: start: 2008
  5. POTASSIUM [Concomitant]
     Indication: NEPHROLITHIASIS
     Route: 048
     Dates: start: 201309
  6. HYDROCODONE ACETAMINOPHEN [Concomitant]
     Indication: PAIN
     Dosage: 10/325 Q4H PRN
     Route: 048
  7. AMITRYPTILINE [Concomitant]
     Indication: DEPRESSION
     Route: 048
     Dates: start: 2011
  8. SIMVASTATIN [Concomitant]
     Route: 048
  9. CITALOPRAM [Concomitant]
     Route: 048
     Dates: start: 2011
  10. OXYCODONE [Concomitant]
     Indication: PAIN
     Dosage: 10 MG 325 MG Q4HPRN
     Route: 048
     Dates: start: 201311
  11. GLUCOSAMINE CHONDROITIN [Concomitant]
     Indication: ARTHROPATHY
     Dosage: 1500MG  1200 MG TID
     Route: 048
     Dates: start: 2012
  12. PREMARIN [Concomitant]
     Indication: HOT FLUSH
     Route: 048
     Dates: start: 2009
  13. METFORMIN HCL [Concomitant]
     Indication: DIABETES MELLITUS
     Route: 048
     Dates: start: 2011
  14. MULTIVITAMIN [Concomitant]
     Indication: SUPPLEMENTATION THERAPY
     Dosage: 1 TABLET DAILY
     Route: 048
     Dates: start: 2004
  15. LATAOPROST [Concomitant]
     Indication: GLAUCOMA
     Dosage: 1 DROP EACH EYE HS
     Route: 050
     Dates: start: 2006
  16. HCTZ [Concomitant]
     Indication: NEPHROLITHIASIS
     Route: 048
     Dates: start: 201309
  17. ROZEREM [Concomitant]
     Indication: RAPID EYE MOVEMENTS SLEEP ABNORMAL
     Route: 048
     Dates: start: 201401
  18. GABAPENTIN [Concomitant]
     Indication: NEURALGIA
     Route: 048
     Dates: start: 201312

REACTIONS (4)
  - Cardiac murmur [Unknown]
  - Eructation [Unknown]
  - Drug effect incomplete [Unknown]
  - Off label use [Unknown]
